FAERS Safety Report 9293860 (Version 1)
Quarter: 2013Q2

REPORT INFORMATION
  Report Type: Spontaneous
  Country: FR (occurrence: FR)
  Receive Date: 20130516
  Receipt Date: 20130516
  Transmission Date: 20140414
  Serious: Yes (Hospitalization)
  Sender: FDA-Public Use
  Company Number: FR-PFIZER INC-2013146955

PATIENT
  Age: 83 Year
  Sex: Female

DRUGS (1)
  1. TRIATEC [Suspect]
     Indication: PRODUCT USED FOR UNKNOWN INDICATION
     Dosage: UNK
     Route: 065
     Dates: start: 201203, end: 20120717

REACTIONS (3)
  - Haemolytic anaemia [Not Recovered/Not Resolved]
  - Overdose [Unknown]
  - Iron deficiency [Unknown]
